FAERS Safety Report 10284986 (Version 1)
Quarter: 2014Q3

REPORT INFORMATION
  Report Type: Spontaneous
  Country: JP (occurrence: JP)
  Receive Date: 20140708
  Receipt Date: 20140708
  Transmission Date: 20150326
  Serious: Yes (Other)
  Sender: FDA-Public Use
  Company Number: JP-GLAXOSMITHKLINE-B1011003A

PATIENT
  Age: 6 Decade
  Sex: Female

DRUGS (4)
  1. ZYLORIC [Suspect]
     Active Substance: ALLOPURINOL
     Route: 048
  2. VELCADE [Suspect]
     Active Substance: BORTEZOMIB
  3. PREDONINE [Concomitant]
     Active Substance: PREDNISOLONE\PREDNISOLONE ACETATE\PREDNISOLONE SODIUM SUCCINATE
     Route: 065
  4. ALKERAN [Suspect]
     Active Substance: MELPHALAN
     Indication: PLASMA CELL MYELOMA
     Route: 048

REACTIONS (2)
  - Amylase increased [Not Recovered/Not Resolved]
  - Pancreatitis [Not Recovered/Not Resolved]
